FAERS Safety Report 7799799-6 (Version None)
Quarter: 2011Q4

REPORT INFORMATION
  Report Type: 
  Country: None (occurrence: None)
  Receive Date: 20111006
  Receipt Date: 20110930
  Transmission Date: 20120403
  Serious: Yes (Hospitalization)
  Sender: FDA-Public Use
  Company Number: JP-ABBOTT-11P-087-0860237-00

PATIENT
  Sex: Female
  Weight: 51.5 kg

DRUGS (8)
  1. MESALAMINE [Concomitant]
     Indication: CROHN'S DISEASE
     Route: 048
  2. ENTERAL NUTRITION [Concomitant]
     Indication: ENTERAL NUTRITION
  3. HUMIRA [Suspect]
     Dates: start: 20101118, end: 20101118
  4. PREDNISOLONE [Concomitant]
     Indication: CROHN'S DISEASE
     Dates: end: 20101201
  5. HUMIRA [Suspect]
     Dates: start: 20101202, end: 20110302
  6. PREDNISOLONE [Concomitant]
     Route: 048
     Dates: start: 20101202, end: 20101230
  7. HUMIRA [Suspect]
     Indication: CROHN'S DISEASE
     Route: 058
     Dates: start: 20101104, end: 20101104
  8. ALFACALCIDOL [Concomitant]
     Indication: OSTEOPOROSIS
     Route: 048

REACTIONS (3)
  - INTESTINAL OBSTRUCTION [None]
  - ARRHYTHMIA [None]
  - BRONCHITIS [None]
